FAERS Safety Report 9771416 (Version 1)
Quarter: 2013Q4

REPORT INFORMATION
  Report Type: Spontaneous
  Country: TR (occurrence: TR)
  Receive Date: 20131219
  Receipt Date: 20131219
  Transmission Date: 20140711
  Serious: Yes (Hospitalization)
  Sender: FDA-Public Use
  Company Number: TR-INDICUS PHARMA-000220

PATIENT
  Age: 76 Year
  Sex: Male

DRUGS (1)
  1. METFORMIN HYDROCHLORIDE [Suspect]
     Indication: TYPE 2 DIABETES MELLITUS
     Dosage: FOR THE LAST 4 WEEKS

REACTIONS (3)
  - Lactic acidosis [Recovering/Resolving]
  - Altered state of consciousness [Recovering/Resolving]
  - Off label use [Unknown]
